FAERS Safety Report 12994660 (Version 4)
Quarter: 2017Q1

REPORT INFORMATION
  Report Type: Report from Study
  Country: US (occurrence: US)
  Receive Date: 20161202
  Receipt Date: 20170206
  Transmission Date: 20170428
  Serious: Yes (Death, Hospitalization, Other)
  Sender: FDA-Public Use
  Company Number: US-009507513-1612USA000417

PATIENT
  Sex: Female

DRUGS (1)
  1. KEYTRUDA [Suspect]
     Active Substance: PEMBROLIZUMAB
     Indication: OROPHARYNGEAL CANCER RECURRENT
     Dosage: UNK
     Route: 042
     Dates: start: 2016, end: 2016

REACTIONS (2)
  - Pneumonia aspiration [Fatal]
  - Adverse event [Unknown]

NARRATIVE: CASE EVENT DATE: 2016
